FAERS Safety Report 12822600 (Version 1)
Quarter: 2016Q4

REPORT INFORMATION
  Report Type: Spontaneous
  Country: US (occurrence: US)
  Receive Date: 20161006
  Receipt Date: 20161006
  Transmission Date: 20170207
  Serious: No
  Sender: FDA-Public Use
  Company Number: US-AMGEN-USASP2016116562

PATIENT
  Age: 65 Year
  Sex: Female

DRUGS (2)
  1. PROLIA [Suspect]
     Active Substance: DENOSUMAB
     Indication: AROMATASE INHIBITION THERAPY
     Dosage: UNK
     Route: 065
  2. RABIES VACCINE [Concomitant]
     Active Substance: RABIES VACCINE

REACTIONS (1)
  - Exposure to communicable disease [Unknown]
